FAERS Safety Report 5303331-6 (Version None)
Quarter: 2007Q2

REPORT INFORMATION
  Report Type: 
  Country: None (occurrence: None)
  Receive Date: 20070420
  Receipt Date: 20070413
  Transmission Date: 20071010
  Serious: Yes (Hospitalization)
  Sender: FDA-Public Use
  Company Number: DE-GLAXOSMITHKLINE-D0052715A

PATIENT
  Age: 44 Year
  Sex: Male
  Weight: 85 kg

DRUGS (4)
  1. ZOVIRAX [Suspect]
     Indication: FACIAL PARESIS
     Dosage: 850MG SINGLE DOSE
     Route: 042
     Dates: start: 20070313, end: 20070313
  2. ATACAND [Concomitant]
     Indication: HYPERTENSION
     Dosage: 8MG AT NIGHT
     Route: 048
     Dates: start: 20070309, end: 20070313
  3. SIMVASTATIN [Concomitant]
     Route: 048
     Dates: start: 20070309, end: 20070313
  4. ASPIRIN [Concomitant]
     Dosage: 100MG IN THE MORNING
     Route: 065

REACTIONS (5)
  - ABDOMINAL DISTENSION [None]
  - BACK PAIN [None]
  - BENIGN PROSTATIC HYPERPLASIA [None]
  - RENAL FAILURE ACUTE [None]
  - SPLENOMEGALY [None]
